FAERS Safety Report 9440637 (Version 1)
Quarter: 2013Q3

REPORT INFORMATION
  Report Type: Spontaneous
  Country: US (occurrence: US)
  Receive Date: 20130805
  Receipt Date: 20130805
  Transmission Date: 20140515
  Serious: No
  Sender: FDA-Public Use
  Company Number: US-PFIZER INC-2013226576

PATIENT
  Age: 54 Year
  Sex: Male
  Weight: 97.96 kg

DRUGS (2)
  1. LYRICA [Suspect]
     Indication: DIABETIC NEUROPATHY
     Dosage: 75 MG, 2X/DAY
     Route: 048
     Dates: start: 201306, end: 201306
  2. GABAPENTIN [Concomitant]

REACTIONS (2)
  - Hypersensitivity [Unknown]
  - Muscle spasms [Unknown]
